FAERS Safety Report 10716543 (Version 1)
Quarter: 2015Q1

REPORT INFORMATION
  Report Type: Spontaneous
  Country: US (occurrence: None)
  Receive Date: 20150115
  Receipt Date: 20150115
  Transmission Date: 20150721
  Serious: Yes (Hospitalization)
  Sender: FDA-Public Use
  Company Number: None

PATIENT
  Age: 70 Year
  Sex: Male
  Weight: 122.47 kg

DRUGS (10)
  1. VITA E [Concomitant]
  2. FISH OIL [Concomitant]
     Active Substance: FISH OIL
  3. VITA B12 [Concomitant]
  4. VITA B1 [Concomitant]
  5. VITA D [Concomitant]
  6. DILTIAZEM [Concomitant]
     Active Substance: DILTIAZEM
  7. SPIRONOLACTONE. [Suspect]
     Active Substance: SPIRONOLACTONE
     Indication: SWELLING
     Dosage: 50 MG, 1 PER DAY, BY MOUTH
     Route: 048
     Dates: start: 20140911, end: 20140914
  8. LISINIPRIL 5MG [Concomitant]
     Active Substance: LISINOPRIL
  9. METFORMIN [Concomitant]
     Active Substance: METFORMIN HYDROCHLORIDE
  10. GLIPIZIDE. [Concomitant]
     Active Substance: GLIPIZIDE

REACTIONS (2)
  - Blood potassium increased [None]
  - Blood pressure decreased [None]

NARRATIVE: CASE EVENT DATE: 20140911
